FAERS Safety Report 6606653-1 (Version None)
Quarter: 2010Q1

REPORT INFORMATION
  Report Type: 
  Country: None (occurrence: None)
  Receive Date: 20100226
  Receipt Date: 20100216
  Transmission Date: 20100710
  Serious: Yes (Hospitalization, Other)
  Sender: FDA-Public Use
  Company Number: BE-ABBOTT-10P-013-0626574-00

PATIENT
  Sex: Male

DRUGS (3)
  1. REDUCTIL [Suspect]
     Indication: WEIGHT DECREASED
  2. SIBUTRAMINE [Concomitant]
     Indication: DRUG USE FOR UNKNOWN INDICATION
  3. UNSPECIFIED FAT-BURNER [Concomitant]
     Indication: DRUG USE FOR UNKNOWN INDICATION

REACTIONS (6)
  - CARDIAC DISORDER [None]
  - DYSPNOEA [None]
  - HAEMOPTYSIS [None]
  - INCORRECT DOSE ADMINISTERED [None]
  - OEDEMA PERIPHERAL [None]
  - RESPIRATORY DISORDER [None]
